FAERS Safety Report 6647344-0 (Version None)
Quarter: 2010Q1

REPORT INFORMATION
  Report Type: 
  Country: None (occurrence: None)
  Receive Date: 20100323
  Receipt Date: 20100317
  Transmission Date: 20100710
  Serious: Yes (Hospitalization)
  Sender: FDA-Public Use
  Company Number: B0641401A

PATIENT
  Age: 76 Year
  Sex: Female

DRUGS (3)
  1. AMOXICILLIN [Suspect]
  2. STRONTIUM RANELATE [Suspect]
  3. LANSOPRAZOLE [Suspect]

REACTIONS (7)
  - CONDITION AGGRAVATED [None]
  - DRUG RASH WITH EOSINOPHILIA AND SYSTEMIC SYMPTOMS [None]
  - EOSINOPHILIA [None]
  - HEPATITIS [None]
  - PYREXIA [None]
  - RENAL FAILURE [None]
  - SKIN TEST POSITIVE [None]
